FAERS Safety Report 8581229-8 (Version None)
Quarter: 2012Q3

REPORT INFORMATION
  Report Type: 
  Country: None (occurrence: None)
  Receive Date: 20120809
  Receipt Date: 20120805
  Transmission Date: 20120928
  Serious: Yes (Other)
  Sender: FDA-Public Use
  Company Number: PHEH2012US006277

PATIENT
  Sex: Male

DRUGS (3)
  1. NEURONTIN [Concomitant]
     Dosage: 400 MG, 3 OR 4 DAILY
  2. EXTAVIA [Suspect]
     Indication: MULTIPLE SCLEROSIS
     Dosage: 0.25 MG, QOD
     Route: 058
  3. NEURONTIN [Concomitant]
     Dosage: 400 MG, TID

REACTIONS (3)
  - HYPOAESTHESIA [None]
  - CHEST DISCOMFORT [None]
  - BAND SENSATION [None]
